FAERS Safety Report 5896914-6 (Version None)
Quarter: 2008Q3

REPORT INFORMATION
  Report Type: 
  Country: None (occurrence: None)
  Receive Date: 20080924
  Receipt Date: 20080917
  Transmission Date: 20090109
  Serious: Yes (Hospitalization, Other)
  Sender: FDA-Public Use
  Company Number: US-BAXTER-2008BH008926

PATIENT
  Age: 51 Year
  Sex: Female

DRUGS (5)
  1. HEPARIN SODIUM INJECTION [Suspect]
     Indication: ACUTE MYOCARDIAL INFARCTION
     Dosage: DOSE UNIT:UNKNOWN
     Route: 040
     Dates: start: 20080520, end: 20080101
  2. ABCIXIMAB [Suspect]
     Indication: PERCUTANEOUS CORONARY INTERVENTION
     Route: 042
     Dates: start: 20080520, end: 20080520
  3. ABCIXIMAB [Suspect]
     Indication: ACUTE MYOCARDIAL INFARCTION
     Route: 042
     Dates: start: 20080520, end: 20080520
  4. ABCIXIMAB [Suspect]
     Route: 042
     Dates: start: 20080520, end: 20080520
  5. ABCIXIMAB [Suspect]
     Route: 042
     Dates: start: 20080520, end: 20080520

REACTIONS (1)
  - INTRAVENTRICULAR HAEMORRHAGE [None]
